FAERS Safety Report 11686098 (Version 1)
Quarter: 2015Q4

REPORT INFORMATION
  Report Type: Report from Study
  Country: US (occurrence: US)
  Receive Date: 20151030
  Receipt Date: 20151030
  Transmission Date: 20160304
  Serious: Yes (Other)
  Sender: FDA-Public Use
  Company Number: US-TEVA-594053USA

PATIENT
  Age: 54 Year
  Sex: Male

DRUGS (1)
  1. CLOZAPINE. [Suspect]
     Active Substance: CLOZAPINE
     Indication: SCHIZOPHRENIA, PARANOID TYPE
     Route: 048
     Dates: end: 20150911

REACTIONS (3)
  - Agranulocytosis [Unknown]
  - Leukopenia [Unknown]
  - Lymphoma [Unknown]

NARRATIVE: CASE EVENT DATE: 20150911
